FAERS Safety Report 19933029 (Version 1)
Quarter: 2021Q4

REPORT INFORMATION
  Report Type: Spontaneous
  Country: US (occurrence: US)
  Receive Date: 20211006
  Receipt Date: 20211006
  Transmission Date: 20220303
  Serious: No
  Sender: FDA-Public Use
  Company Number: None

PATIENT
  Sex: Female

DRUGS (1)
  1. HUMIRA [Suspect]
     Active Substance: ADALIMUMAB
     Indication: Colitis ulcerative
     Dosage: ?          OTHER FREQUENCY:EVERY15DAYS ;
     Route: 058
     Dates: start: 20160331

REACTIONS (2)
  - Irritable bowel syndrome [None]
  - Condition aggravated [None]
